FAERS Safety Report 8056186-3 (Version None)
Quarter: 2012Q1

REPORT INFORMATION
  Report Type: 
  Country: None (occurrence: None)
  Receive Date: 20120112
  Receipt Date: 20120103
  Transmission Date: 20120608
  Serious: Yes (Hospitalization, Disabling)
  Sender: FDA-Public Use
  Company Number: 2012NUEUSA00063

PATIENT
  Age: 85 Year
  Sex: Female

DRUGS (3)
  1. NUEDEXTA [Suspect]
     Indication: AFFECT LABILITY
     Dosage: 1 CAP, QD, ORAL 1 CAP, BID, ORAL
     Route: 048
     Dates: start: 20111201, end: 20111201
  2. NUEDEXTA [Suspect]
     Indication: AFFECT LABILITY
     Dosage: 1 CAP, QD, ORAL 1 CAP, BID, ORAL
     Route: 048
     Dates: start: 20111201
  3. VITAMIN B-12 [Concomitant]

REACTIONS (1)
  - CEREBROVASCULAR ACCIDENT [None]
